FAERS Safety Report 5122486-X (Version None)
Quarter: 2006Q4

REPORT INFORMATION
  Report Type: 
  Country: None (occurrence: None)
  Receive Date: 20061004
  Receipt Date: 20060921
  Transmission Date: 20070319
  Serious: Yes (Other)
  Sender: FDA-Public Use
  Company Number: 230300

PATIENT
  Age: 76 Year
  Sex: Female
  Weight: 79.4 kg

DRUGS (2)
  1. LUCENTIS [Suspect]
     Indication: MACULAR DEGENERATION
     Dosage: X2, INTRAVITREAL
     Dates: start: 20060701, end: 20060801
  2. AVASTIN [Suspect]
     Indication: MACULAR DEGENERATION
     Dosage: INTRAVITREAL
     Dates: start: 20060101

REACTIONS (2)
  - EYE SWELLING [None]
  - VITREOUS FLOATERS [None]
